FAERS Safety Report 12746795 (Version 1)
Quarter: 2016Q3

REPORT INFORMATION
  Report Type: Spontaneous
  Country: US (occurrence: US)
  Receive Date: 20160915
  Receipt Date: 20160915
  Transmission Date: 20161109
  Serious: Yes (Hospitalization)
  Sender: FDA-Public Use
  Company Number: US-ASTELLAS-2015US032575

PATIENT
  Sex: Male

DRUGS (1)
  1. XTANDI [Suspect]
     Active Substance: ENZALUTAMIDE
     Indication: PROSTATE CANCER
     Dosage: 160 MG, ONCE DAILY (04 X 40 MG)
     Route: 048

REACTIONS (4)
  - Dementia Alzheimer^s type [Unknown]
  - Decreased appetite [Unknown]
  - Clostridium difficile colitis [Unknown]
  - Diarrhoea [Unknown]
